FAERS Safety Report 22314859 (Version 3)
Quarter: 2023Q2

REPORT INFORMATION
  Report Type: Spontaneous
  Country: None (occurrence: JP)
  Receive Date: 20230512
  Receipt Date: 20230606
  Transmission Date: 20230722
  Serious: Yes (Hospitalization)
  Sender: FDA-Public Use
  Company Number: JP-Ascend Therapeutics US, LLC-2141413

PATIENT
  Age: 64 Year
  Sex: Female

DRUGS (3)
  1. ESTROGEL [Suspect]
     Active Substance: ESTRADIOL
     Indication: Prevention of endometrial hyperplasia
     Route: 048
     Dates: start: 20220719, end: 20221129
  2. PROGESTERONE [Suspect]
     Active Substance: PROGESTERONE
     Route: 048
     Dates: start: 20220719, end: 20221129
  3. ESTROGEL [Suspect]
     Active Substance: ESTRADIOL
     Route: 062
     Dates: start: 201508, end: 202303

REACTIONS (1)
  - Uterine polyp [Recovered/Resolved]
